FAERS Safety Report 12004100 (Version 1)
Quarter: 2016Q1

REPORT INFORMATION
  Report Type: Spontaneous
  Country: US (occurrence: US)
  Receive Date: 20160204
  Receipt Date: 20160204
  Transmission Date: 20160526
  Serious: Yes (Hospitalization, Other)
  Sender: FDA-Public Use
  Company Number: US-BRISTOL-MYERS SQUIBB COMPANY-BMS-2016-005865

PATIENT
  Sex: Female

DRUGS (1)
  1. ELIQUIS [Suspect]
     Active Substance: APIXABAN
     Indication: THROMBOSIS
     Dosage: 2.5 MG, BID
     Route: 065
     Dates: start: 20160122

REACTIONS (5)
  - Hypotension [Unknown]
  - Abdominal operation [Unknown]
  - Haemorrhage [Unknown]
  - Thrombosis [Unknown]
  - Stent placement [Unknown]

NARRATIVE: CASE EVENT DATE: 20160123
